FAERS Safety Report 6724524-7 (Version None)
Quarter: 2010Q2

REPORT INFORMATION
  Report Type: 
  Country: None (occurrence: None)
  Receive Date: 20100513
  Receipt Date: 20100507
  Transmission Date: 20101027
  Serious: Yes (Life-Threatening, Hospitalization)
  Sender: FDA-Public Use
  Company Number: CA-PFIZER INC-2010057763

PATIENT
  Age: 60 Year
  Sex: Male
  Weight: 80.3 kg

DRUGS (6)
  1. MARAVIROC [Suspect]
     Dosage: 150 MG, 2X/DAY
     Route: 048
     Dates: start: 20070905
  2. ABACAVIR [Suspect]
     Indication: HIV INFECTION
     Dosage: 600 MG, 1X/DAY
     Route: 048
     Dates: start: 20050811, end: 20100505
  3. ATAZANAVIR [Concomitant]
     Dosage: UNK
     Route: 048
     Dates: start: 20050811
  4. RITONAVIR [Concomitant]
     Dosage: UNK
     Route: 048
     Dates: start: 20050811
  5. TRAZODONE [Concomitant]
     Dosage: UNK
     Route: 048
     Dates: start: 20071011
  6. VITALUX [Concomitant]
     Dosage: UNK
     Route: 048
     Dates: start: 20081106

REACTIONS (3)
  - ARTERIOSCLEROSIS [None]
  - CORONARY ARTERY OCCLUSION [None]
  - MYOCARDIAL INFARCTION [None]
